FAERS Safety Report 7260338-X (Version None)
Quarter: 2011Q1

REPORT INFORMATION
  Report Type: 
  Country: None (occurrence: None)
  Receive Date: 20110130
  Receipt Date: 20101008
  Transmission Date: 20110831
  Serious: No
  Sender: FDA-Public Use
  Company Number: US-ABBOTT-10P-163-0677016-00

PATIENT
  Sex: Male
  Weight: 95.34 kg

DRUGS (2)
  1. HUMIRA [Suspect]
     Indication: PSORIASIS
     Dates: start: 20100916
  2. CELLCEPT [Concomitant]
     Indication: PSORIASIS

REACTIONS (1)
  - FATIGUE [None]
